FAERS Safety Report 25025475 (Version 1)
Quarter: 2025Q1

REPORT INFORMATION
  Report Type: Spontaneous
  Country: JP (occurrence: JP)
  Receive Date: 20250228
  Receipt Date: 20250228
  Transmission Date: 20250408
  Serious: Yes (Hospitalization)
  Sender: EISAI
  Company Number: JP-Eisai Medical Research-EC-2023-136532

PATIENT
  Age: 30 Year
  Sex: Male

DRUGS (5)
  1. LENVIMA [Suspect]
     Active Substance: LENVATINIB
     Indication: Renal cell carcinoma
     Dates: start: 20221003, end: 202211
  2. LENVIMA [Suspect]
     Active Substance: LENVATINIB
     Dates: start: 202211, end: 202211
  3. LENVIMA [Suspect]
     Active Substance: LENVATINIB
     Dates: start: 202211, end: 202301
  4. LENVIMA [Suspect]
     Active Substance: LENVATINIB
     Dates: start: 202301, end: 20230303
  5. KEYTRUDA [Suspect]
     Active Substance: PEMBROLIZUMAB
     Indication: Renal cell carcinoma
     Dates: start: 20221003, end: 20230303

REACTIONS (2)
  - Cholangitis sclerosing [Recovering/Resolving]
  - Erythema [Recovering/Resolving]

NARRATIVE: CASE EVENT DATE: 20230303
